FAERS Safety Report 8772897 (Version 3)
Quarter: 2012Q4

REPORT INFORMATION
  Report Type: Report from Study
  Country: DE (occurrence: DE)
  Receive Date: 20120907
  Receipt Date: 20121115
  Transmission Date: 20130627
  Serious: Yes (Life-Threatening, Hospitalization, Other)
  Sender: FDA-Public Use
  Company Number: DE-CELGENEUS-062-21880-12090059

PATIENT
  Age: 76 Year
  Sex: Male
  Weight: 76 kg

DRUGS (13)
  1. REVLIMID [Suspect]
     Indication: MULTIPLE MYELOMA
     Dosage: 15 Milligram
     Route: 048
     Dates: start: 20120827, end: 20120831
  2. PIOGLITAZONE [Suspect]
     Indication: MULTIPLE MYELOMA
     Dosage: 60 Milligram
     Route: 048
     Dates: start: 20120827, end: 20120831
  3. DEXAMETHASONE [Suspect]
     Indication: MULTIPLE MYELOMA
     Dosage: 40 Milligram
     Route: 048
     Dates: start: 20120827, end: 20120831
  4. DEXAMETHASONE [Suspect]
     Dosage: 1 Milligram
     Route: 048
     Dates: end: 20120902
  5. TREOSULFAN [Suspect]
     Indication: MULTIPLE MYELOMA
     Dosage: 500 Milligram
     Route: 048
     Dates: start: 20120827, end: 20120831
  6. ACICLOVIR [Concomitant]
     Indication: ANTIVIRAL PROPHYLAXIS
     Dosage: 800 Milligram
     Route: 048
  7. SIMVA [Concomitant]
     Indication: DRUG THERAPY
     Dosage: 20 Milligram
     Route: 048
  8. OMEPRAZOLE [Concomitant]
     Indication: GASTRITIS PROPHYLAXIS
     Dosage: 20 Milligram
     Route: 048
  9. CITALOPRAM [Concomitant]
     Indication: ANTIDEPRESSANT THERAPY
     Dosage: 20 Milligram
     Route: 048
  10. MORPHINE [Concomitant]
     Indication: ANALGESIA
     Dosage: 60 Milligram
     Route: 048
  11. CLEXANE [Concomitant]
     Indication: ANTICOAGULANT THERAPY
     Dosage: 40 Milligram
     Route: 058
  12. RELEASAN [Concomitant]
     Indication: POTASSIUM REPLACEMENT
     Dosage: 1200 Milligram
     Route: 048
  13. MAGNOSANOL [Concomitant]
     Indication: MAGNESIUM
     Route: 048

REACTIONS (2)
  - Sepsis [Recovered/Resolved]
  - Renal failure [Recovered/Resolved]
